FAERS Safety Report 11629461 (Version 6)
Quarter: 2015Q4

REPORT INFORMATION
  Report Type: Report from Study
  Country: IT (occurrence: IT)
  Receive Date: 20151014
  Receipt Date: 20151118
  Transmission Date: 20160304
  Serious: Yes (Hospitalization)
  Sender: FDA-Public Use
  Company Number: IT-SA-2015SA158799

PATIENT
  Age: 44 Year
  Sex: Female
  Weight: 54 kg

DRUGS (5)
  1. SOLDESAM [Concomitant]
     Active Substance: DEXAMETHASONE
     Route: 048
     Dates: start: 20150813, end: 20150820
  2. SOLDESAM [Concomitant]
     Active Substance: DEXAMETHASONE
     Route: 048
     Dates: start: 20150831, end: 20150908
  3. TERIFLUNOMIDE [Suspect]
     Active Substance: TERIFLUNOMIDE
     Indication: MULTIPLE SCLEROSIS RELAPSE
     Route: 048
     Dates: start: 20141117
  4. PANTOPRAZOLE [Concomitant]
     Active Substance: PANTOPRAZOLE SODIUM
     Route: 048
     Dates: start: 20150813, end: 20150908
  5. SOLDESAM [Concomitant]
     Active Substance: DEXAMETHASONE
     Route: 048
     Dates: start: 20150821, end: 20150830

REACTIONS (1)
  - Cerebral sarcoidosis [Recovering/Resolving]

NARRATIVE: CASE EVENT DATE: 20150911
